FAERS Safety Report 4310454-7 (Version None)
Quarter: 2004Q1

REPORT INFORMATION
  Report Type: 
  Country: None (occurrence: None)
  Receive Date: 20040301
  Receipt Date: 20031111
  Transmission Date: 20041129
  Serious: No
  Sender: FDA-Public Use
  Company Number: WAES 0311USA01210

PATIENT
  Age: 56 Year
  Sex: Male
  Weight: 68.0396 kg

DRUGS (4)
  1. ZETIA [Suspect]
     Indication: BLOOD CHOLESTEROL INCREASED
     Dosage: 10 MG/DAILY/PO
     Route: 048
     Dates: start: 20031006, end: 20031101
  2. HYDRODIURIL [Concomitant]
  3. PLAVIX [Concomitant]
  4. ASPIRIN [Concomitant]

REACTIONS (3)
  - BLOOD CREATINE PHOSPHOKINASE INCREASED [None]
  - MUSCLE CRAMP [None]
  - MYALGIA [None]
